FAERS Safety Report 9501360 (Version 1)
Quarter: 2013Q1

REPORT INFORMATION
  Report Type: Spontaneous
  Country: US (occurrence: None)
  Receive Date: 20130225
  Receipt Date: 20130225
  Transmission Date: 20140127
  Serious: Yes (Death)
  Sender: FDA-Public Use
  Company Number: 2012-503

PATIENT
  Age: 83 Year
  Sex: Female
  Weight: 65.8 kg

DRUGS (5)
  1. PRIALT (ZICONOTIDE) INTRATHECAL INFUSION [Suspect]
     Indication: POST HERPETIC NEURALGIA
     Route: 037
     Dates: start: 20120611, end: 201210
  2. PRIALT (ZICONOTIDE) INTRATHECAL INFUSION [Suspect]
     Indication: TRIGEMINAL NEURALGIA
     Route: 037
     Dates: start: 20120611, end: 201210
  3. PRIALT (ZICONOTIDE) INTRATHECAL INFUSION [Suspect]
     Indication: PAIN
     Route: 037
     Dates: start: 20120611, end: 201210
  4. PRIALT (ZICONOTIDE) INTRATHECAL INFUSION [Suspect]
     Indication: PAIN
     Route: 037
     Dates: start: 20120611, end: 201210
  5. METHADONE HYDROCHLORIDE (METHADONE HYDROCHLORIDE) [Concomitant]

REACTIONS (3)
  - Completed suicide [None]
  - Oedema peripheral [None]
  - Joint swelling [None]
